FAERS Safety Report 9661614 (Version 2)
Quarter: 2013Q4

REPORT INFORMATION
  Report Type: Spontaneous
  Country: US (occurrence: US)
  Receive Date: 20131031
  Receipt Date: 20131031
  Transmission Date: 20140711
  Serious: No
  Sender: FDA-Public Use
  Company Number: US-PURDUE-USA-2010-0053313

PATIENT
  Sex: Female

DRUGS (4)
  1. OXYCONTIN (NDA 22-272) [Suspect]
     Indication: PAIN
     Dosage: 60 MG, Q8H
  2. OXYCONTIN (NDA 22-272) [Suspect]
     Dosage: 20 MG, UNK
  3. VICODIN ES [Concomitant]
     Indication: BREAKTHROUGH PAIN
     Dosage: 1 TABLET, Q6H
  4. ZOLOFT [Concomitant]
     Indication: DEPRESSION

REACTIONS (3)
  - Pain [Not Recovered/Not Resolved]
  - Therapeutic response delayed [Not Recovered/Not Resolved]
  - Drug effect decreased [Not Recovered/Not Resolved]
